FAERS Safety Report 6735882-1 (Version None)
Quarter: 2010Q2

REPORT INFORMATION
  Report Type: 
  Country: None (occurrence: None)
  Receive Date: 20100521
  Receipt Date: 20100511
  Transmission Date: 20101027
  Serious: Yes (Death)
  Sender: FDA-Public Use
  Company Number: A0860262A

PATIENT
  Age: 71 Year
  Sex: Female

DRUGS (2)
  1. AVANDIA [Suspect]
     Indication: DIABETES MELLITUS
     Dosage: 4U TWICE PER DAY
     Dates: start: 20060101, end: 20060801
  2. AVANDAMET [Suspect]
     Indication: DIABETES MELLITUS
     Dates: start: 20060901, end: 20061220

REACTIONS (1)
  - DEATH [None]
